FAERS Safety Report 5365181-4 (Version None)
Quarter: 2007Q2

REPORT INFORMATION
  Report Type: 
  Country: None (occurrence: None)
  Receive Date: 20070530
  Receipt Date: 20070124
  Transmission Date: 20071010
  Serious: No
  Sender: FDA-Public Use
  Company Number: 2007PV028941

PATIENT
  Age: 58 Year
  Sex: Male

DRUGS (10)
  1. BYETTA [Suspect]
     Indication: DECREASED APPETITE
     Dosage: 10 MCG;BID;SC ; 10 MCG;BID;SC ; 5 MCG;BID;SC
     Route: 058
     Dates: start: 20060101, end: 20060101
  2. BYETTA [Suspect]
     Indication: WEIGHT CONTROL
     Dosage: 10 MCG;BID;SC ; 10 MCG;BID;SC ; 5 MCG;BID;SC
     Route: 058
     Dates: start: 20060101, end: 20060101
  3. BYETTA [Suspect]
     Indication: DECREASED APPETITE
     Dosage: 10 MCG;BID;SC ; 10 MCG;BID;SC ; 5 MCG;BID;SC
     Route: 058
     Dates: start: 20060101, end: 20060101
  4. BYETTA [Suspect]
     Indication: WEIGHT CONTROL
     Dosage: 10 MCG;BID;SC ; 10 MCG;BID;SC ; 5 MCG;BID;SC
     Route: 058
     Dates: start: 20060101, end: 20060101
  5. BYETTA [Suspect]
     Indication: DECREASED APPETITE
     Dosage: 10 MCG;BID;SC ; 10 MCG;BID;SC ; 5 MCG;BID;SC
     Route: 058
     Dates: start: 20070101
  6. BYETTA [Suspect]
     Indication: WEIGHT CONTROL
     Dosage: 10 MCG;BID;SC ; 10 MCG;BID;SC ; 5 MCG;BID;SC
     Route: 058
     Dates: start: 20070101
  7. AVANDIA [Concomitant]
  8. METFORMIN HCL [Concomitant]
  9. LOPID [Concomitant]
  10. TESTOSTERONE [Concomitant]

REACTIONS (4)
  - DECREASED APPETITE [None]
  - INJECTION SITE BRUISING [None]
  - INJECTION SITE PAIN [None]
  - INJECTION SITE PRURITUS [None]
